FAERS Safety Report 25387402 (Version 2)
Quarter: 2025Q3

REPORT INFORMATION
  Report Type: Spontaneous
  Country: US (occurrence: US)
  Receive Date: 20250602
  Receipt Date: 20250810
  Transmission Date: 20251021
  Serious: No
  Sender: ALEXION PHARMACEUTICALS
  Company Number: US-AstraZeneca-CH-00881061A

PATIENT

DRUGS (1)
  1. SAPHNELO [Suspect]
     Active Substance: ANIFROLUMAB-FNIA
     Route: 065

REACTIONS (5)
  - Myalgia [Unknown]
  - Neuralgia [Unknown]
  - Hypokinesia [Unknown]
  - Insurance issue [Unknown]
  - Withdrawal syndrome [Unknown]
